FAERS Safety Report 9745336 (Version 2)
Quarter: 2015Q4

REPORT INFORMATION
  Report Type: Report from Study
  Country: US (occurrence: US)
  Receive Date: 20131211
  Receipt Date: 20151008
  Transmission Date: 20160305
  Serious: Yes (Death, Other)
  Sender: FDA-Public Use
  Company Number: US-ROCHE-1315470

PATIENT
  Age: 69 Year
  Sex: Male

DRUGS (3)
  1. ACTEMRA [Suspect]
     Active Substance: TOCILIZUMAB
     Dosage: RECEIVED ON DEC/2012, JAN/2013 AND FEB/2013.
     Route: 042
     Dates: end: 20130416
  2. ACTEMRA [Suspect]
     Active Substance: TOCILIZUMAB
     Indication: RHEUMATOID ARTHRITIS
     Route: 042
     Dates: start: 20110428
  3. ACTEMRA [Suspect]
     Active Substance: TOCILIZUMAB
     Route: 042

REACTIONS (3)
  - Rib fracture [Unknown]
  - Lung disorder [Fatal]
  - Cough [Unknown]

NARRATIVE: CASE EVENT DATE: 201303
